FAERS Safety Report 25308233 (Version 1)
Quarter: 2025Q2

REPORT INFORMATION
  Report Type: Spontaneous
  Country: RO (occurrence: RO)
  Receive Date: 20250513
  Receipt Date: 20250513
  Transmission Date: 20250716
  Serious: Yes (Hospitalization)
  Sender: ALEXION PHARMACEUTICALS
  Company Number: RO-AstraZeneca-CH-00864631A

PATIENT
  Age: 50 Year
  Weight: 95 kg

DRUGS (3)
  1. DAPAGLIFLOZIN [Suspect]
     Active Substance: DAPAGLIFLOZIN
     Indication: Chronic kidney disease
     Dosage: 10 MILLIGRAM, QD
  2. CANDESARTAN [Concomitant]
     Active Substance: CANDESARTAN
     Indication: Chronic kidney disease
     Dosage: 24 MILLIGRAM, QD
     Route: 065
  3. UNSPECIFIED INGREDIENT [Concomitant]
     Active Substance: UNSPECIFIED INGREDIENT
     Indication: Antiplatelet therapy
     Route: 065

REACTIONS (1)
  - Erysipelas [Recovered/Resolved]
